FAERS Safety Report 11314572 (Version 6)
Quarter: 2015Q4

REPORT INFORMATION
  Report Type: Report from Study
  Country: CA (occurrence: CA)
  Receive Date: 20150727
  Receipt Date: 20151209
  Transmission Date: 20160304
  Serious: Yes (Other)
  Sender: FDA-Public Use
  Company Number: CA-ABBVIE-15K-028-1343895-00

PATIENT
  Sex: Male
  Weight: 65.83 kg

DRUGS (4)
  1. ENTOCORT [Concomitant]
     Active Substance: BUDESONIDE
     Indication: PRODUCT USED FOR UNKNOWN INDICATION
  2. HUMIRA [Suspect]
     Active Substance: ADALIMUMAB
     Route: 058
     Dates: start: 201503, end: 201505
  3. HUMIRA [Suspect]
     Active Substance: ADALIMUMAB
     Route: 058
     Dates: start: 20150805, end: 20150805
  4. HUMIRA [Suspect]
     Active Substance: ADALIMUMAB
     Indication: CROHN^S DISEASE
     Route: 058
     Dates: start: 20130906, end: 201503

REACTIONS (17)
  - Abscess bacterial [Recovering/Resolving]
  - Drug effect decreased [Not Recovered/Not Resolved]
  - Drug eruption [Unknown]
  - Purulent discharge [Not Recovered/Not Resolved]
  - Bacterial infection [Not Recovered/Not Resolved]
  - Alopecia [Unknown]
  - Bloody discharge [Not Recovered/Not Resolved]
  - Anorectal discomfort [Not Recovered/Not Resolved]
  - Psoriasis [Unknown]
  - Proctalgia [Unknown]
  - Anal abscess [Not Recovered/Not Resolved]
  - Abdominal pain lower [Not Recovered/Not Resolved]
  - Sepsis [Unknown]
  - Abdominal tenderness [Unknown]
  - Weight decreased [Unknown]
  - Pain [Not Recovered/Not Resolved]
  - Anal fistula [Not Recovered/Not Resolved]

NARRATIVE: CASE EVENT DATE: 2015
